FAERS Safety Report 8565658-4 (Version None)
Quarter: 2012Q3

REPORT INFORMATION
  Report Type: 
  Country: None (occurrence: None)
  Receive Date: 20120803
  Receipt Date: 20120723
  Transmission Date: 20120928
  Serious: Yes (Other)
  Sender: FDA-Public Use
  Company Number: SE-JNJFOC-20120712869

PATIENT
  Age: 16 Year
  Sex: Female

DRUGS (4)
  1. AN UNKNOWN MEDICATION [Concomitant]
     Indication: PRODUCT USED FOR UNKNOWN INDICATION
     Route: 065
  2. CIRCADIN [Concomitant]
     Indication: SLEEP DISORDER
     Route: 065
  3. CONCERTA [Suspect]
     Indication: ATTENTION DEFICIT/HYPERACTIVITY DISORDER
     Route: 048
  4. CONCERTA [Suspect]
     Route: 048
     Dates: start: 20110303

REACTIONS (5)
  - FIBROMYALGIA [None]
  - DRUG INEFFECTIVE [None]
  - POST VIRAL FATIGUE SYNDROME [None]
  - SLEEP DISORDER [None]
  - FATIGUE [None]
